FAERS Safety Report 13107451 (Version 4)
Quarter: 2018Q1

REPORT INFORMATION
  Report Type: Spontaneous
  Country: US (occurrence: US)
  Receive Date: 20170112
  Receipt Date: 20180202
  Transmission Date: 20180508
  Serious: No
  Sender: FDA-Public Use
  Company Number: US-TEVA-725318ACC

PATIENT
  Age: 63 Year
  Sex: Female

DRUGS (14)
  1. BACLOFEN. [Concomitant]
     Active Substance: BACLOFEN
  2. COLCHICINE. [Concomitant]
     Active Substance: COLCHICINE
  3. EVISTA [Concomitant]
     Active Substance: RALOXIFENE HYDROCHLORIDE
  4. COPAXONE [Suspect]
     Active Substance: GLATIRAMER ACETATE
     Indication: MULTIPLE SCLEROSIS
     Dosage: FORM STRENGTH: UNKNOWN
     Route: 058
     Dates: start: 20070223
  5. PHENYTOIN. [Concomitant]
     Active Substance: PHENYTOIN
  6. AMITRIPTYLINE [Concomitant]
     Active Substance: AMITRIPTYLINE
  7. MULTIVITAMIN [Concomitant]
     Active Substance: VITAMINS
  8. BACTRIM DS [Concomitant]
     Active Substance: SULFAMETHOXAZOLE\TRIMETHOPRIM
     Dosage: 800-160
  9. COPAXONE [Suspect]
     Active Substance: GLATIRAMER ACETATE
     Dosage: PREFILLED SYRINGE
     Route: 058
     Dates: start: 201302
  10. LYRICA [Concomitant]
     Active Substance: PREGABALIN
  11. GABAPENTIN. [Concomitant]
     Active Substance: GABAPENTIN
  12. CARBAMAZEPINE. [Concomitant]
     Active Substance: CARBAMAZEPINE
  13. CALCIUM [Concomitant]
     Active Substance: CALCIUM
  14. ALLOPURINOL. [Concomitant]
     Active Substance: ALLOPURINOL

REACTIONS (7)
  - Fall [Not Recovered/Not Resolved]
  - Ill-defined disorder [Recovered/Resolved]
  - Vision blurred [Unknown]
  - Gait inability [Not Recovered/Not Resolved]
  - Muscle spasticity [Not Recovered/Not Resolved]
  - Fatigue [Not Recovered/Not Resolved]
  - Drug dose omission [Unknown]

NARRATIVE: CASE EVENT DATE: 20161020
